FAERS Safety Report 5777930-1 (Version None)
Quarter: 2008Q2

REPORT INFORMATION
  Report Type: 
  Country: None (occurrence: None)
  Receive Date: 20080617
  Receipt Date: 20080617
  Transmission Date: 20081010
  Serious: Yes (Hospitalization)
  Sender: FDA-Public Use
  Company Number: None

PATIENT
  Sex: Female
  Weight: 95.6 kg

DRUGS (6)
  1. CISPLATIN [Suspect]
     Dosage: 96 MG
  2. DOXORUBICIN HYDROCHLORIDE [Suspect]
     Dosage: 86 MG
  3. TAXOL [Suspect]
     Dosage: 307 MG
  4. NEULASTA [Suspect]
     Dosage: 6 MG
  5. DECADRON [Concomitant]
  6. COMPAZINE [Concomitant]

REACTIONS (1)
  - BLOOD MAGNESIUM DECREASED [None]
